FAERS Safety Report 4999099-3 (Version None)
Quarter: 2006Q1

REPORT INFORMATION
  Report Type: 
  Country: None (occurrence: None)
  Receive Date: 20060315
  Receipt Date: 20051206
  Transmission Date: 20060701
  Serious: Yes (Other)
  Sender: FDA-Public Use
  Company Number: 422626

PATIENT
  Age: 68 Year
  Sex: Female
  Weight: 65.8 kg

DRUGS (10)
  1. BONIVA [Suspect]
     Indication: OSTEOPOROSIS
     Dosage: 150 MG 1 PER MONTH ORAL
     Route: 048
     Dates: start: 20051015, end: 20051015
  2. COZAAR [Concomitant]
  3. TOPROL-XL [Concomitant]
  4. ZOCOR [Concomitant]
  5. SYNTHROID [Concomitant]
  6. GUAIFENESIN (GUAIFENESIN) [Concomitant]
  7. FISH OIL (FISH OIL) [Concomitant]
  8. FLAXSEED (LINUM USITATISSIMUM) [Concomitant]
  9. GLUCOSAMINE (GLUCOSAMINE) [Concomitant]
  10. MULTI-VITS (MULTIVITAMIN NOS) [Concomitant]

REACTIONS (6)
  - CONTUSION [None]
  - LOWER EXTREMITY MASS [None]
  - NECK PAIN [None]
  - OEDEMA PERIPHERAL [None]
  - PAIN IN EXTREMITY [None]
  - SHOULDER PAIN [None]
